FAERS Safety Report 6589649-8 (Version None)
Quarter: 2010Q1

REPORT INFORMATION
  Report Type: 
  Country: None (occurrence: None)
  Receive Date: 20100212
  Receipt Date: 20100201
  Transmission Date: 20100710
  Serious: Yes (Hospitalization, Other)
  Sender: FDA-Public Use
  Company Number: 2010SP006864

PATIENT
  Age: 76 Year
  Sex: Female

DRUGS (9)
  1. MIRALAX [Suspect]
     Dosage: PO
     Route: 048
  2. DASATINIB [Suspect]
     Indication: BREAST CANCER METASTATIC
     Dosage: 70 MG; QD; PO, 100 MG; QD; PO
     Route: 048
     Dates: start: 20091030, end: 20091216
  3. DASATINIB [Suspect]
     Indication: BREAST CANCER METASTATIC
     Dosage: 70 MG; QD; PO, 100 MG; QD; PO
     Route: 048
     Dates: start: 20091216, end: 20100105
  4. OXYCODONE [Suspect]
  5. ALPRAZOLAM [Suspect]
  6. EFFEXOR [Concomitant]
  7. SYNTHROID [Concomitant]
  8. AMBIEN [Concomitant]
  9. PROTONIX [Concomitant]

REACTIONS (19)
  - ABDOMINAL PAIN [None]
  - ANAEMIA [None]
  - ANXIETY [None]
  - ASTHENIA [None]
  - BONE SCAN ABNORMAL [None]
  - CONFUSIONAL STATE [None]
  - CONSTIPATION [None]
  - ESCHERICHIA URINARY TRACT INFECTION [None]
  - GAIT DISTURBANCE [None]
  - HEADACHE [None]
  - HYPERCALCAEMIA [None]
  - HYPERTENSION [None]
  - LIVER FUNCTION TEST NORMAL [None]
  - MUSCULAR WEAKNESS [None]
  - MUSCULOSKELETAL CHEST PAIN [None]
  - MUSCULOSKELETAL PAIN [None]
  - OEDEMA PERIPHERAL [None]
  - PLEURAL EFFUSION [None]
  - URINARY INCONTINENCE [None]
